FAERS Safety Report 24266381 (Version 1)
Quarter: 2024Q3

REPORT INFORMATION
  Report Type: Spontaneous
  Country: AR (occurrence: None)
  Receive Date: 20240830
  Receipt Date: 20240830
  Transmission Date: 20241016
  Serious: Yes (Life-Threatening, Other)
  Sender: ORION
  Company Number: AR-Orion Corporation ORION PHARMA-ENT 2024-0041

PATIENT
  Age: 75 Year
  Sex: Female

DRUGS (2)
  1. COMTAN [Suspect]
     Active Substance: ENTACAPONE
     Indication: Parkinson^s disease
     Dosage: 1 PILL EVERY 3 HOURS
  2. COMTAN [Suspect]
     Active Substance: ENTACAPONE
     Dosage: 0.5 PILL EVERY 3 HOURS

REACTIONS (7)
  - Parkinson^s disease [Unknown]
  - Muscle spasms [Unknown]
  - Paralysis [Unknown]
  - Incorrect dose administered [Unknown]
  - Wrong technique in product usage process [Unknown]
  - Product complaint [Unknown]
  - Product availability issue [Unknown]
